FAERS Safety Report 6015485-7 (Version None)
Quarter: 2008Q4

REPORT INFORMATION
  Report Type: 
  Country: None (occurrence: None)
  Receive Date: 20081222
  Receipt Date: 20081218
  Transmission Date: 20090506
  Serious: Yes (Hospitalization, Other)
  Sender: FDA-Public Use
  Company Number: US-ELI_LILLY_AND_COMPANY-US200809004229

PATIENT
  Age: 55 Year
  Sex: Male

DRUGS (4)
  1. BYETTA [Suspect]
     Dosage: 5 UG, 2/D
     Route: 058
     Dates: start: 20080301, end: 20080901
  2. BYETTA [Suspect]
     Dosage: 10 UG, 2/D
     Route: 058
     Dates: start: 20080401
  3. LISINOPRIL [Concomitant]
     Dosage: 5 UG, 2/D
     Route: 065
     Dates: start: 20080301, end: 20080401
  4. LISINOPRIL [Concomitant]
     Dosage: 10 UG, 2/D
     Route: 058
     Dates: start: 20080401

REACTIONS (1)
  - PANCREATITIS ACUTE [None]
